FAERS Safety Report 9051173 (Version 1)
Quarter: 2013Q1

REPORT INFORMATION
  Report Type: Report from Study
  Country: GB (occurrence: GB)
  Receive Date: 20130206
  Receipt Date: 20130206
  Transmission Date: 20140127
  Serious: Yes (Death, Other)
  Sender: FDA-Public Use
  Company Number: GB-GENZYME-CLOF-1002508

PATIENT
  Age: 65 None
  Sex: Male

DRUGS (2)
  1. EVOLTRA [Suspect]
     Indication: ACUTE MYELOID LEUKAEMIA
     Dosage: CYCLE 2
     Route: 065
     Dates: start: 20121130, end: 20121204
  2. DAUNORUBICIN [Suspect]
     Indication: ACUTE MYELOID LEUKAEMIA
     Dosage: 100 MG, CYCLE 2, (DAY 1,3 AND 5)
     Route: 065
     Dates: start: 20121130, end: 20121204

REACTIONS (8)
  - Hypoxia [Fatal]
  - Cardiac failure [Fatal]
  - Infection [Fatal]
  - Thrombocytopenia [Fatal]
  - Neutropenia [Recovered/Resolved]
  - Crepitations [Fatal]
  - Dyspnoea [Fatal]
  - Death [Fatal]
